FAERS Safety Report 6157751-0 (Version None)
Quarter: 2009Q2

REPORT INFORMATION
  Report Type: 
  Country: None (occurrence: None)
  Receive Date: 20090416
  Receipt Date: 20090409
  Transmission Date: 20091009
  Serious: Yes (Hospitalization, Other)
  Sender: FDA-Public Use
  Company Number: US-MERCK-0811USA02810

PATIENT
  Age: 67 Year
  Sex: Female
  Weight: 55 kg

DRUGS (6)
  1. FOSAMAX [Suspect]
     Indication: OSTEOPOROSIS
     Route: 048
     Dates: start: 19951201, end: 20071201
  2. FOSAMAX [Suspect]
     Route: 048
     Dates: start: 20071201, end: 20080101
  3. MOBIC [Concomitant]
     Indication: OSTEOARTHRITIS
     Route: 065
  4. TYLENOL [Concomitant]
     Route: 065
  5. CALCIUM (UNSPECIFIED) [Concomitant]
     Route: 065
  6. FOSAMAX PLUS D [Suspect]
     Route: 048
     Dates: start: 19950101, end: 20080101

REACTIONS (15)
  - ABSCESS [None]
  - ANXIETY DISORDER [None]
  - ARTHRITIS INFECTIVE [None]
  - DEPRESSION [None]
  - DRUG WITHDRAWAL SYNDROME [None]
  - HERPES ZOSTER [None]
  - HYPERCHOLESTEROLAEMIA [None]
  - HYPERTENSION [None]
  - MUSCULOSKELETAL PAIN [None]
  - NEUROPATHY PERIPHERAL [None]
  - OSTEOMYELITIS [None]
  - OSTEONECROSIS [None]
  - PROCTALGIA [None]
  - SCOLIOSIS [None]
  - THYROID NEOPLASM [None]
